FAERS Safety Report 8763977 (Version 1)
Quarter: 2012Q4

REPORT INFORMATION
  Report Type: 
  Country: DE (occurrence: US)
  Receive Date: 20120831
  Receipt Date: 20120831
  Transmission Date: 20130627
  Serious: No
  Sender: FDA-Public Use
  Company Number: US-009507513-1208USA004114

PATIENT

DRUGS (3)
  1. BLINDED ETONOGESTREL IMPLANT- IMPLANON NEXT [Suspect]
     Dosage: UNK
     Dates: start: 20120228
  2. UNSPECIFIED INGREDIENT [Suspect]
     Dosage: UNK
     Dates: start: 20120228
  3. UNSPECIFIED INGREDIENT [Suspect]
     Dosage: UNK
     Dates: start: 20120228

REACTIONS (1)
  - Medical device complication [Unknown]
